FAERS Safety Report 17671595 (Version 2)
Quarter: 2020Q2

REPORT INFORMATION
  Report Type: Spontaneous
  Country: FR (occurrence: FR)
  Receive Date: 20200415
  Receipt Date: 20200417
  Transmission Date: 20200713
  Serious: Yes (Other)
  Sender: FDA-Public Use
  Company Number: NVSC2020FR100630

PATIENT
  Age: 2 Year
  Sex: Female
  Weight: 8.2 kg

DRUGS (1)
  1. PARACETAMOL [Suspect]
     Active Substance: ACETAMINOPHEN
     Indication: ENCEPHALITIS
     Dosage: 1000 MG, ONCE/SINGLE
     Route: 041
     Dates: start: 20191225

REACTIONS (4)
  - Incorrect dose administered [Recovered/Resolved]
  - Product prescribing error [Recovered/Resolved]
  - Accidental overdose [Recovered/Resolved]
  - Analgesic drug level increased [Recovered/Resolved]

NARRATIVE: CASE EVENT DATE: 20191225
